FAERS Safety Report 7041309-5 (Version None)
Quarter: 2010Q4

REPORT INFORMATION
  Report Type: 
  Country: None (occurrence: None)
  Receive Date: 20101013
  Receipt Date: 20101004
  Transmission Date: 20110411
  Serious: Yes (Other)
  Sender: FDA-Public Use
  Company Number: GB-BAUSCH-2010BL005630

PATIENT
  Age: 84 Year
  Sex: Male

DRUGS (2)
  1. LOTEMAX [Suspect]
     Indication: POSTOPERATIVE CARE
     Route: 047
     Dates: start: 20100909, end: 20100914
  2. DIAMOX SRC [Concomitant]
     Indication: INTRAOCULAR PRESSURE INCREASED
     Dates: start: 20100909

REACTIONS (3)
  - ANTERIOR CHAMBER INFLAMMATION [None]
  - MACULAR OEDEMA [None]
  - RETINAL VEIN OCCLUSION [None]
